FAERS Safety Report 8331022-6 (Version None)
Quarter: 2012Q2

REPORT INFORMATION
  Report Type: 
  Country: None (occurrence: None)
  Receive Date: 20120502
  Receipt Date: 20120427
  Transmission Date: 20120825
  Serious: Yes (Other)
  Sender: FDA-Public Use
  Company Number: JP-PFIZER INC-2012050401

PATIENT
  Age: 63 Year
  Sex: Female

DRUGS (2)
  1. XALATAN [Suspect]
     Indication: GLAUCOMA
     Dosage: 1 GTT, 1X/DAY
     Route: 047
     Dates: start: 20120123, end: 20120225
  2. HYALURONATE SODIUM [Concomitant]
     Indication: DRY EYE
     Dosage: 1 GTT, UNK
     Route: 047
     Dates: start: 20110920

REACTIONS (6)
  - ERYTHEMA [None]
  - SWELLING FACE [None]
  - FEELING HOT [None]
  - EYELID OEDEMA [None]
  - EYELID IRRITATION [None]
  - EYELIDS PRURITUS [None]
